FAERS Safety Report 4836992-6 (Version None)
Quarter: 2005Q4

REPORT INFORMATION
  Report Type: 
  Country: None (occurrence: None)
  Receive Date: 20051117
  Receipt Date: 20051031
  Transmission Date: 20060501
  Serious: No
  Sender: FDA-Public Use
  Company Number: 33017

PATIENT

DRUGS (4)
  1. VIGAMOX [Suspect]
     Dosage: 1 GTT Q3HR, OPHT
     Route: 047
  2. CILODEX (CIPROFLOXACIN HCL 0.3% AND DEXAMETHASONE 0.1% SUSPENSION [Suspect]
     Dosage: 1 GTT Q3HR, OPHT
     Route: 047
  3. OPHTALMOS [Concomitant]
  4. SODIUM CHLORIDE COMPOUND INJECTION [Concomitant]

REACTIONS (2)
  - ENDOPHTHALMITIS [None]
  - POST PROCEDURAL COMPLICATION [None]
